FAERS Safety Report 6824000-7 (Version None)
Quarter: 2010Q3

REPORT INFORMATION
  Report Type: 
  Country: None (occurrence: None)
  Receive Date: 20100708
  Receipt Date: 20061006
  Transmission Date: 20110219
  Serious: No
  Sender: FDA-Public Use
  Company Number: US-PFIZER INC-2006111537

PATIENT
  Sex: Male
  Weight: 74.39 kg

DRUGS (4)
  1. CHANTIX [Suspect]
     Indication: EX-TOBACCO USER
     Dates: start: 20060824
  2. SIMVASTATIN [Concomitant]
  3. WELLBUTRIN [Concomitant]
     Dates: end: 20060821
  4. ZYBAN [Concomitant]
     Dates: end: 20060821

REACTIONS (1)
  - ANGER [None]
